FAERS Safety Report 7127868-2 (Version None)
Quarter: 2010Q4

REPORT INFORMATION
  Report Type: 
  Country: None (occurrence: None)
  Receive Date: 20101029
  Receipt Date: 20100816
  Transmission Date: 20110411
  Serious: No
  Sender: FDA-Public Use
  Company Number: US-003463

PATIENT
  Sex: Male
  Weight: 72.1219 kg

DRUGS (9)
  1. FIRMAGON [Suspect]
     Indication: PROSTATE CANCER
     Dosage: (240 MG1X SUBCUTANEOUS), (80 MG 1X/MONTH SUBCUTANEOUS)
     Route: 048
     Dates: start: 20090526
  2. FIRMAGON [Suspect]
     Indication: PROSTATE CANCER
     Dosage: (240 MG1X SUBCUTANEOUS), (80 MG 1X/MONTH SUBCUTANEOUS)
     Route: 048
     Dates: start: 20090623
  3. FIRMAGON [Suspect]
     Indication: PROSTATE CANCER
     Dosage: (240 MG1X SUBCUTANEOUS), (80 MG 1X/MONTH SUBCUTANEOUS)
     Route: 048
     Dates: start: 20090804
  4. UROXATRAL [Concomitant]
  5. METOPROLOL [Concomitant]
  6. GLIPIZIDE [Concomitant]
  7. ALEVE [Concomitant]
  8. ASPIRIN [Concomitant]
  9. LISINOPRIL [Concomitant]

REACTIONS (2)
  - BREAST MASS [None]
  - INJECTION SITE NODULE [None]
